FAERS Safety Report 5768387-5 (Version None)
Quarter: 2008Q2

REPORT INFORMATION
  Report Type: 
  Country: None (occurrence: None)
  Receive Date: 20080612
  Receipt Date: 20080303
  Transmission Date: 20081010
  Serious: No
  Sender: FDA-Public Use
  Company Number: US-ABBOTT-08P-163-0440891-00

PATIENT
  Sex: Male
  Weight: 127.12 kg

DRUGS (4)
  1. HUMIRA [Suspect]
     Indication: CROHN'S DISEASE
     Route: 058
     Dates: start: 20080201, end: 20080201
  2. HUMIRA [Suspect]
     Route: 058
     Dates: start: 20080215, end: 20080215
  3. HUMIRA [Suspect]
     Route: 058
     Dates: start: 20080215
  4. AZITHROMYCIN [Suspect]
     Indication: NASOPHARYNGITIS
     Route: 048
     Dates: start: 20080227, end: 20080229

REACTIONS (14)
  - CHILLS [None]
  - DYSPHAGIA [None]
  - FATIGUE [None]
  - HERPES VIRUS INFECTION [None]
  - HYPERHIDROSIS [None]
  - MOUTH ULCERATION [None]
  - MYALGIA [None]
  - NASOPHARYNGITIS [None]
  - ORAL FUNGAL INFECTION [None]
  - ORAL HERPES [None]
  - ORAL INTAKE REDUCED [None]
  - PYREXIA [None]
  - UPPER RESPIRATORY TRACT INFECTION [None]
  - WEIGHT DECREASED [None]
